FAERS Safety Report 23990590 (Version 1)
Quarter: 2024Q2

REPORT INFORMATION
  Report Type: Spontaneous
  Country: PR (occurrence: PR)
  Receive Date: 20240619
  Receipt Date: 20240619
  Transmission Date: 20240716
  Serious: No
  Sender: FDA-Public Use
  Company Number: PR-BRISTOL-MYERS SQUIBB COMPANY-2024-098383

PATIENT
  Age: 69 Year
  Sex: Female
  Weight: 53.07 kg

DRUGS (1)
  1. POMALYST [Suspect]
     Active Substance: POMALIDOMIDE
     Indication: Plasma cell myeloma
     Route: 048
     Dates: start: 200007

REACTIONS (1)
  - Mycoplasma infection [Recovered/Resolved]

NARRATIVE: CASE EVENT DATE: 20240601
